FAERS Safety Report 23664663 (Version 1)
Quarter: 2024Q1

REPORT INFORMATION
  Report Type: Spontaneous
  Country: CA (occurrence: CA)
  Receive Date: 20240322
  Receipt Date: 20240322
  Transmission Date: 20240409
  Serious: Yes (Other)
  Sender: FDA-Public Use
  Company Number: CA-PFIZER INC-202400068616

PATIENT
  Age: 76 Year
  Sex: Male

DRUGS (1)
  1. ABRILADA [Suspect]
     Active Substance: ADALIMUMAB-AFZB
     Indication: Psoriasis
     Dosage: 40 MG, EVERY 2 WEEKS
     Route: 058
     Dates: start: 20230510

REACTIONS (2)
  - Cardiac failure congestive [Unknown]
  - Bronchitis [Unknown]

NARRATIVE: CASE EVENT DATE: 20231201
